FAERS Safety Report 5613750-6 (Version None)
Quarter: 2008Q1

REPORT INFORMATION
  Report Type: 
  Country: None (occurrence: None)
  Receive Date: 20080205
  Receipt Date: 20080130
  Transmission Date: 20080703
  Serious: Yes (Hospitalization)
  Sender: FDA-Public Use
  Company Number: ES-AVENTIS-200810579EU

PATIENT
  Age: 88 Year
  Sex: Female

DRUGS (3)
  1. SEGURIL                            /00032601/ [Suspect]
     Route: 048
     Dates: start: 20060101
  2. ALDACTONE [Suspect]
     Route: 048
     Dates: start: 20060101
  3. RENITEC                            /00574901/ [Suspect]
     Route: 048
     Dates: start: 20060101

REACTIONS (1)
  - HYPERKALAEMIA [None]
